FAERS Safety Report 9478752 (Version 2)
Quarter: 2013Q4

REPORT INFORMATION
  Report Type: Spontaneous
  Country: US (occurrence: US)
  Receive Date: 20130827
  Receipt Date: 20131106
  Transmission Date: 20140711
  Serious: Yes (Hospitalization)
  Sender: FDA-Public Use
  Company Number: US-JNJFOC-20130811816

PATIENT
  Age: 82 Year
  Sex: Male
  Weight: 48.08 kg

DRUGS (12)
  1. XARELTO [Suspect]
     Indication: ATRIAL FIBRILLATION
     Route: 048
     Dates: start: 20130702
  2. LEVOXYL [Concomitant]
     Indication: HYPOTHYROIDISM
     Route: 065
  3. LISINOPRIL [Concomitant]
     Indication: HYPERTENSION
     Route: 065
  4. SIMVASTATIN [Concomitant]
     Route: 065
  5. HYDROCHLOROTHIAZIDE [Concomitant]
     Route: 048
  6. ATENOLOL [Concomitant]
     Route: 065
  7. PROPAFENONE [Concomitant]
     Route: 065
  8. FOSAMAX [Concomitant]
     Route: 065
  9. HYDROCORTISONE [Concomitant]
     Route: 065
  10. CALCIUM W/VITAMINS NOS [Concomitant]
     Route: 065
  11. MULTIVITAMINS [Concomitant]
     Route: 048
  12. NORVASC [Concomitant]
     Route: 065

REACTIONS (1)
  - Cerebral infarction [Recovered/Resolved]
